FAERS Safety Report 10467396 (Version 6)
Quarter: 2015Q3

REPORT INFORMATION
  Report Type: Spontaneous
  Country: US (occurrence: US)
  Receive Date: 20140922
  Receipt Date: 20150925
  Transmission Date: 20151125
  Serious: Yes (Death, Hospitalization, Other)
  Sender: FDA-Public Use
  Company Number: US-009507513-1409USA009890

PATIENT
  Sex: Male
  Weight: 92.97 kg

DRUGS (5)
  1. JANUVIA [Suspect]
     Active Substance: SITAGLIPTIN PHOSPHATE
     Indication: TYPE 2 DIABETES MELLITUS
     Dosage: 100 MG, QD
     Route: 048
     Dates: start: 20061109, end: 20091210
  2. BYETTA [Suspect]
     Active Substance: EXENATIDE
     Dosage: UNK
     Dates: start: 20090115, end: 20090211
  3. BYETTA [Suspect]
     Active Substance: EXENATIDE
     Dosage: 5 MICROGRAM, BID
     Dates: start: 20050627, end: 20060109
  4. BYETTA [Suspect]
     Active Substance: EXENATIDE
     Dosage: 10 MICROGRAM, BID
     Dates: start: 20060109, end: 20080208
  5. VICTOZA [Suspect]
     Active Substance: LIRAGLUTIDE
     Dosage: 18MG / 3ML PEN BID
     Dates: start: 20101028, end: 20130228

REACTIONS (22)
  - Pancreatitis [Unknown]
  - Rectal haemorrhage [Unknown]
  - Urinary tract disorder [Unknown]
  - Constipation [Unknown]
  - Metastases to lung [Unknown]
  - Myocardial infarction [Unknown]
  - Macular oedema [Unknown]
  - Pleural effusion [Unknown]
  - Thyroid neoplasm [Unknown]
  - Insulin-requiring type 2 diabetes mellitus [Unknown]
  - Pulmonary mass [Unknown]
  - Anaemia [Unknown]
  - Pancreatic carcinoma metastatic [Fatal]
  - Gastrooesophageal reflux disease [Unknown]
  - Metastases to peritoneum [Unknown]
  - Spinal osteoarthritis [Unknown]
  - Large intestine polyp [Unknown]
  - Coronary arterial stent insertion [Unknown]
  - Lung consolidation [Unknown]
  - Retinopathy [Unknown]
  - Malignant ascites [Unknown]
  - Interstitial lung disease [Not Recovered/Not Resolved]

NARRATIVE: CASE EVENT DATE: 2007
